FAERS Safety Report 5576486-6 (Version None)
Quarter: 2007Q4

REPORT INFORMATION
  Report Type: 
  Country: None (occurrence: None)
  Receive Date: 20071228
  Receipt Date: 20071228
  Transmission Date: 20080405
  Serious: Yes (Other)
  Sender: FDA-Public Use
  Company Number: A0700700A

PATIENT
  Age: 48 Year
  Sex: Male

DRUGS (2)
  1. NICORETTE [Suspect]
     Indication: SMOKING CESSATION THERAPY
     Dosage: 2MG UNKNOWN
     Route: 002
     Dates: start: 20070101
  2. NICORETTE [Suspect]
     Indication: SMOKING CESSATION THERAPY
     Dosage: 4MG UNKNOWN
     Route: 002
     Dates: start: 20071001, end: 20070101

REACTIONS (1)
  - HEPATIC ENZYME INCREASED [None]
